FAERS Safety Report 24717766 (Version 1)
Quarter: 2024Q4

REPORT INFORMATION
  Report Type: Spontaneous
  Country: US (occurrence: None)
  Receive Date: 20241210
  Receipt Date: 20241210
  Transmission Date: 20250115
  Serious: Yes (Hospitalization)
  Sender: Public
  Company Number: None

PATIENT
  Sex: Female

DRUGS (1)
  1. STELARA [Suspect]
     Active Substance: USTEKINUMAB
     Dosage: OTHER QUANTITY : 90MG/1ML;?OTHER FREQUENCY : EVERY 6 WEEKS;?
     Route: 058
     Dates: start: 202103

REACTIONS (2)
  - Crohn^s disease [None]
  - Rheumatoid arthritis [None]
